FAERS Safety Report 15120400 (Version 2)
Quarter: 2018Q3

REPORT INFORMATION
  Report Type: Report from Study
  Country: US (occurrence: US)
  Receive Date: 20180709
  Receipt Date: 20180905
  Transmission Date: 20181010
  Serious: Yes (Hospitalization, Disabling, Other)
  Sender: FDA-Public Use
  Company Number: US-AMGEN-USASL2018082587

PATIENT
  Age: 63 Year
  Sex: Male
  Weight: 107.94 kg

DRUGS (2)
  1. REPATHA [Suspect]
     Active Substance: EVOLOCUMAB
     Indication: TYPE IIA HYPERLIPIDAEMIA
     Dosage: 140 MG, Q2WK
     Route: 058
     Dates: start: 20170808
  2. REPATHA [Suspect]
     Active Substance: EVOLOCUMAB
     Indication: HYPERCHOLESTEROLAEMIA
     Dosage: 140 MG, QMO
     Route: 058

REACTIONS (11)
  - Chest discomfort [Unknown]
  - Musculoskeletal pain [Recovering/Resolving]
  - Electrocardiogram abnormal [Unknown]
  - Palpitations [Unknown]
  - Dyspnoea [Unknown]
  - Back pain [Unknown]
  - Mobility decreased [Recovering/Resolving]
  - Nausea [Unknown]
  - Off label use [Unknown]
  - Dizziness [Unknown]
  - Vertigo CNS origin [Not Recovered/Not Resolved]

NARRATIVE: CASE EVENT DATE: 20180123
